FAERS Safety Report 16150570 (Version 1)
Quarter: 2019Q2

REPORT INFORMATION
  Report Type: Spontaneous
  Country: FR (occurrence: FR)
  Receive Date: 20190402
  Receipt Date: 20190402
  Transmission Date: 20190711
  Serious: Yes (Hospitalization)
  Sender: FDA-Public Use
  Company Number: FR-ACTELION-A-CH2019-188094

PATIENT
  Age: 74 Year
  Sex: Male
  Weight: 112 kg

DRUGS (16)
  1. ATORVASTATINE [Concomitant]
     Active Substance: ATORVASTATIN
  2. KARDEGIC [Concomitant]
     Active Substance: ASPIRIN DL-LYSINE
  3. PREGABALINE [Concomitant]
     Active Substance: PREGABALIN
  4. MEROPENEM. [Suspect]
     Active Substance: MEROPENEM
     Indication: INFECTION
     Route: 042
     Dates: start: 20181012, end: 20181121
  5. UPTRAVI [Suspect]
     Active Substance: SELEXIPAG
     Indication: PULMONARY ARTERIAL HYPERTENSION
     Route: 048
     Dates: start: 20181024
  6. CALCIPARINE [Concomitant]
     Active Substance: HEPARIN CALCIUM
  7. ACTRAPID [Concomitant]
     Active Substance: INSULIN HUMAN
  8. OFLOXACINE [Suspect]
     Active Substance: OFLOXACIN
     Indication: INFECTION
     Route: 048
     Dates: start: 20180927, end: 20181113
  9. VOLIBRIS [Concomitant]
     Active Substance: AMBRISENTAN
  10. ACUPAN [Concomitant]
     Active Substance: NEFOPAM HYDROCHLORIDE
  11. PANTOPRAZOLE [Concomitant]
     Active Substance: PANTOPRAZOLE
  12. LEVOTHYROX [Concomitant]
     Active Substance: LEVOTHYROXINE
  13. PERFALGAN [Concomitant]
     Active Substance: ACETAMINOPHEN
  14. FUROSEMIDE. [Concomitant]
     Active Substance: FUROSEMIDE
  15. VELETRI [Concomitant]
     Active Substance: EPOPROSTENOL
     Indication: PULMONARY ARTERIAL HYPERTENSION
     Route: 042
     Dates: end: 20181024
  16. ADCIRCA [Concomitant]
     Active Substance: TADALAFIL

REACTIONS (2)
  - Rash [Recovering/Resolving]
  - Eosinophilia [Recovered/Resolved]

NARRATIVE: CASE EVENT DATE: 201811
